FAERS Safety Report 14685459 (Version 2)
Quarter: 2018Q2

REPORT INFORMATION
  Report Type: Spontaneous
  Country: US (occurrence: US)
  Receive Date: 20180327
  Receipt Date: 20180402
  Transmission Date: 20180711
  Serious: Yes (Other)
  Sender: FDA-Public Use
  Company Number: US-ABBVIE-18K-163-2301486-00

PATIENT
  Age: 53 Year
  Sex: Male
  Weight: 49.03 kg

DRUGS (2)
  1. HUMIRA [Suspect]
     Active Substance: ADALIMUMAB
     Indication: CROHN^S DISEASE
     Route: 058
     Dates: start: 2005, end: 2010
  2. PREVACID SOLUTAB [Concomitant]
     Active Substance: LANSOPRAZOLE
     Indication: PRODUCT USED FOR UNKNOWN INDICATION

REACTIONS (8)
  - Iron deficiency [Not Recovered/Not Resolved]
  - Hypoaesthesia [Not Recovered/Not Resolved]
  - Atrial flutter [Not Recovered/Not Resolved]
  - Paraesthesia [Not Recovered/Not Resolved]
  - Squamous cell carcinoma [Not Recovered/Not Resolved]
  - Staphylococcal infection [Recovered/Resolved]
  - Peripheral swelling [Recovered/Resolved]
  - Cachexia [Not Recovered/Not Resolved]

NARRATIVE: CASE EVENT DATE: 2010
